FAERS Safety Report 9957468 (Version 1)
Quarter: 2014Q1

REPORT INFORMATION
  Report Type: Report from Study
  Country: US (occurrence: US)
  Receive Date: 20140304
  Receipt Date: 20140304
  Transmission Date: 20141002
  Serious: Yes (Hospitalization, Other)
  Sender: FDA-Public Use
  Company Number: US-ABBVIE-13P-163-1098981-00

PATIENT
  Age: 39 Year
  Sex: Male

DRUGS (19)
  1. HUMIRA [Suspect]
     Indication: CROHN^S DISEASE
     Dates: start: 20130423, end: 20130423
  2. HUMIRA [Suspect]
     Dates: start: 20130505, end: 20130508
  3. AMLODIPINE [Concomitant]
     Indication: PRODUCT USED FOR UNKNOWN INDICATION
  4. COREG [Concomitant]
     Indication: HYPERTENSION
  5. HYDROCODONE [Concomitant]
     Indication: PRODUCT USED FOR UNKNOWN INDICATION
     Dosage: 7.5/325
  6. VICODIN [Concomitant]
     Indication: PAIN
     Dosage: 5/500 MG 1 EVERY 4 HOURS
  7. INSULIN LANTUS [Concomitant]
     Indication: DIABETES MELLITUS
     Route: 058
  8. HUMALOG [Concomitant]
     Indication: DIABETES MELLITUS
     Dosage: ON SLIDING SCALE BEFORE MEALS
     Route: 058
  9. LEVOTHYROXINE [Concomitant]
     Indication: THYROID DISORDER
  10. HYZAAR [Concomitant]
     Indication: CARDIAC DISORDER
     Dosage: 25/100 TAB
  11. OMEPRAZOLE [Concomitant]
     Indication: GASTRIC DISORDER
  12. PREDNISONE [Concomitant]
     Indication: CROHN^S DISEASE
  13. VENLAFAXINE [Concomitant]
     Indication: NEURALGIA
  14. COUMADIN [Concomitant]
     Indication: THROMBOSIS
  15. AMBIEN [Concomitant]
     Indication: INSOMNIA
  16. POTASSIUM [Concomitant]
     Indication: PRODUCT USED FOR UNKNOWN INDICATION
  17. MAGNESIUM [Concomitant]
     Indication: PRODUCT USED FOR UNKNOWN INDICATION
  18. CALCIUM CITRATE [Concomitant]
     Indication: BLOOD CALCIUM
  19. MULTI VITAMIN [Concomitant]
     Indication: PRODUCT USED FOR UNKNOWN INDICATION

REACTIONS (6)
  - Hospitalisation [Not Recovered/Not Resolved]
  - Demyelination [Unknown]
  - Fall [Unknown]
  - Dysarthria [Unknown]
  - Movement disorder [Unknown]
  - Fall [Unknown]
